FAERS Safety Report 15761607 (Version 2)
Quarter: 2018Q4

REPORT INFORMATION
  Report Type: Spontaneous
  Country: JP (occurrence: JP)
  Receive Date: 20181226
  Receipt Date: 20181229
  Transmission Date: 20190205
  Serious: Yes (Hospitalization, Other)
  Sender: FDA-Public Use
  Company Number: JP-GLAXOSMITHKLINE-JP2018JPN225746

PATIENT
  Age: 9 Decade
  Sex: Male

DRUGS (1)
  1. AVOLVE [Suspect]
     Active Substance: DUTASTERIDE
     Indication: BENIGN PROSTATIC HYPERPLASIA
     Dosage: 0.5 MG, QD
     Route: 050

REACTIONS (5)
  - Product use issue [Unknown]
  - Cerebral infarction [Recovered/Resolved with Sequelae]
  - Wrong technique in product usage process [Unknown]
  - Bladder cancer [Unknown]
  - Feeding disorder [Unknown]
